FAERS Safety Report 16265486 (Version 2)
Quarter: 2019Q3

REPORT INFORMATION
  Report Type: Spontaneous
  Country: US (occurrence: US)
  Receive Date: 20190502
  Receipt Date: 20190807
  Transmission Date: 20191004
  Serious: No
  Sender: FDA-Public Use
  Company Number: US-SA-2019SA119995

PATIENT
  Age: 18 Year
  Sex: Female

DRUGS (1)
  1. DUPIXENT [Suspect]
     Active Substance: DUPILUMAB
     Indication: PRODUCT USED FOR UNKNOWN INDICATION
     Dosage: 300 MG, QOW
     Route: 058
     Dates: start: 20190322

REACTIONS (4)
  - Cough [Recovering/Resolving]
  - Injection site pain [Unknown]
  - Lip dry [Recovering/Resolving]
  - Eyelid skin dryness [Recovering/Resolving]

NARRATIVE: CASE EVENT DATE: 20190405
